FAERS Safety Report 14180847 (Version 1)
Quarter: 2017Q4

REPORT INFORMATION
  Report Type: Spontaneous
  Country: US (occurrence: US)
  Receive Date: 20171110
  Receipt Date: 20171110
  Transmission Date: 20180321
  Serious: No
  Sender: FDA-Public Use
  Company Number: US-ACTELION-A-NJ2017-162401

PATIENT
  Age: 28 Year
  Sex: Male

DRUGS (3)
  1. ADCIRCA [Concomitant]
     Active Substance: TADALAFIL
  2. LETAIRIS [Concomitant]
     Active Substance: AMBRISENTAN
  3. UPTRAVI [Suspect]
     Active Substance: SELEXIPAG
     Indication: PULMONARY ARTERIAL HYPERTENSION
     Dosage: 400 MCG, BID
     Route: 048

REACTIONS (8)
  - Pyrexia [Unknown]
  - Asthenia [Unknown]
  - Sluggishness [Unknown]
  - Myalgia [Unknown]
  - Cough [Unknown]
  - Sinusitis [Unknown]
  - Fatigue [Unknown]
  - Muscular weakness [Unknown]
